FAERS Safety Report 13550054 (Version 4)
Quarter: 2017Q4

REPORT INFORMATION
  Report Type: Report from Study
  Country: None (occurrence: DE)
  Receive Date: 20170516
  Receipt Date: 20171115
  Transmission Date: 20180320
  Serious: Yes (Hospitalization, Other)
  Sender: FDA-Public Use
  Company Number: DE-ABBVIE-17K-062-1969242-00

PATIENT
  Age: 73 Year
  Sex: Female
  Weight: 95 kg

DRUGS (21)
  1. CANDESARTAN. [Concomitant]
     Active Substance: CANDESARTAN
     Indication: PRODUCT USED FOR UNKNOWN INDICATION
     Route: 048
  2. METFORMIN [Concomitant]
     Active Substance: METFORMIN HYDROCHLORIDE
     Indication: PRODUCT USED FOR UNKNOWN INDICATION
  3. CANDESARTAN. [Concomitant]
     Active Substance: CANDESARTAN
     Indication: PRODUCT USED FOR UNKNOWN INDICATION
  4. XIPAMID [Concomitant]
     Active Substance: XIPAMIDE
     Indication: PRODUCT USED FOR UNKNOWN INDICATION
     Route: 048
  5. JANUVIA [Concomitant]
     Active Substance: SITAGLIPTIN PHOSPHATE
     Indication: PRODUCT USED FOR UNKNOWN INDICATION
  6. TORASEMID [Concomitant]
     Active Substance: TORSEMIDE
     Indication: PRODUCT USED FOR UNKNOWN INDICATION
  7. ALLOPURINOL. [Concomitant]
     Active Substance: ALLOPURINOL
     Indication: PRODUCT USED FOR UNKNOWN INDICATION
  8. METOPROLOL. [Concomitant]
     Active Substance: METOPROLOL
     Indication: PRODUCT USED FOR UNKNOWN INDICATION
  9. METOPROLOL. [Concomitant]
     Active Substance: METOPROLOL
  10. PANTOZOL [Concomitant]
     Active Substance: PANTOPRAZOLE SODIUM
     Indication: PRODUCT USED FOR UNKNOWN INDICATION
     Route: 048
  11. BEROTEC [Concomitant]
     Active Substance: FENOTEROL HYDROBROMIDE
     Indication: PRODUCT USED FOR UNKNOWN INDICATION
     Dosage: 3 TO 4 HUBS WHEN NEEDED
  12. HUMALOG [Concomitant]
     Active Substance: INSULIN LISPRO
     Indication: PRODUCT USED FOR UNKNOWN INDICATION
     Dosage: ACCORDING VALUE
  13. HUMIRA [Suspect]
     Active Substance: ADALIMUMAB
     Indication: PSORIATIC ARTHROPATHY
  14. SODERM PLUS [Concomitant]
     Indication: PSORIASIS
     Dates: start: 20170410
  15. SITAGLIPTIN [Concomitant]
     Active Substance: SITAGLIPTIN
     Indication: PRODUCT USED FOR UNKNOWN INDICATION
     Route: 048
  16. TORASEMID [Concomitant]
     Active Substance: TORSEMIDE
  17. HUMIRA [Suspect]
     Active Substance: ADALIMUMAB
     Indication: PSORIASIS
     Route: 058
     Dates: start: 20111027, end: 20170411
  18. METHIZOL [Concomitant]
     Active Substance: METHIMAZOLE
     Indication: PRODUCT USED FOR UNKNOWN INDICATION
  19. METOPROLOL. [Concomitant]
     Active Substance: METOPROLOL
  20. BETAMETHASONE. [Concomitant]
     Active Substance: BETAMETHASONE
     Indication: PRODUCT USED FOR UNKNOWN INDICATION
     Dates: start: 20170410
  21. METOPROLOL. [Concomitant]
     Active Substance: METOPROLOL

REACTIONS (40)
  - Dyspnoea at rest [Recovered/Resolved]
  - Cardiomyopathy [Recovering/Resolving]
  - Pickwickian syndrome [Unknown]
  - Ventricular tachyarrhythmia [Unknown]
  - Pulmonary congestion [Unknown]
  - Hyperkalaemia [Recovered/Resolved]
  - Normocytic anaemia [Unknown]
  - Pulmonary hypertension [Recovering/Resolving]
  - Hypochromic anaemia [Unknown]
  - Cardiac failure [Recovering/Resolving]
  - Orthopnoea [Recovering/Resolving]
  - Tachycardia [Unknown]
  - Respiratory acidosis [Unknown]
  - Goitre [Unknown]
  - Diastolic dysfunction [Unknown]
  - Renal failure [Recovering/Resolving]
  - Dyspnoea exertional [Unknown]
  - Oedema peripheral [Unknown]
  - Hypertensive heart disease [Unknown]
  - Cyanosis [Unknown]
  - Cardiomegaly [Unknown]
  - Obesity [Unknown]
  - Weight decreased [Unknown]
  - Pneumonia [Unknown]
  - Aortic valve sclerosis [Unknown]
  - Aortic valve stenosis [Recovering/Resolving]
  - Atrial fibrillation [Unknown]
  - Left ventricular end-diastolic pressure increased [Unknown]
  - Ascites [Unknown]
  - Cardiovascular disorder [Unknown]
  - Dyspnoea exertional [Unknown]
  - Iron deficiency anaemia [Unknown]
  - Respiratory failure [Recovering/Resolving]
  - Respiratory failure [Unknown]
  - Lung infiltration [Unknown]
  - Oedema peripheral [Unknown]
  - Oedema peripheral [Recovered/Resolved]
  - Hypothyroidism [Unknown]
  - General physical health deterioration [Recovering/Resolving]
  - Pleural effusion [Unknown]

NARRATIVE: CASE EVENT DATE: 201612
